FAERS Safety Report 19286486 (Version 1)
Quarter: 2021Q2

REPORT INFORMATION
  Report Type: Spontaneous
  Country: US (occurrence: US)
  Receive Date: 20210521
  Receipt Date: 20210521
  Transmission Date: 20210717
  Serious: No
  Sender: FDA-Public Use
  Company Number: US-RADIUS HEALTH INC.-2020US003079

PATIENT
  Age: 73 Year
  Sex: Female

DRUGS (1)
  1. TYMLOS [Suspect]
     Active Substance: ABALOPARATIDE
     Indication: OSTEOPOROSIS
     Dosage: 80 MCG, QD
     Route: 058
     Dates: start: 202003

REACTIONS (10)
  - Feeling abnormal [Unknown]
  - Wrong technique in product usage process [Unknown]
  - Arthralgia [Unknown]
  - Pollakiuria [Unknown]
  - Incorrect product administration duration [Recovered/Resolved]
  - Chills [Recovering/Resolving]
  - Genital rash [Recovering/Resolving]
  - Dysgeusia [Recovered/Resolved]
  - Nausea [Recovering/Resolving]
  - Vertigo [Recovering/Resolving]

NARRATIVE: CASE EVENT DATE: 20200831
